FAERS Safety Report 19140266 (Version 2)
Quarter: 2021Q3

REPORT INFORMATION
  Report Type: Spontaneous
  Country: US (occurrence: US)
  Receive Date: 20210415
  Receipt Date: 20210714
  Transmission Date: 20211014
  Serious: No
  Sender: FDA-Public Use
  Company Number: US-AIMMUNE THERAPEUTICS, INC.-2021AIMT00211

PATIENT

DRUGS (1)
  1. PALFORZIA [Suspect]
     Active Substance: PEANUT
     Indication: FOOD ALLERGY
     Dosage: IDE (INITIAL DOSE ESCALATION), ONCE
     Route: 048
     Dates: start: 20210401

REACTIONS (4)
  - Sensation of foreign body [Recovered/Resolved]
  - Ear pruritus [Recovered/Resolved]
  - Abdominal discomfort [Unknown]
  - Throat irritation [Unknown]

NARRATIVE: CASE EVENT DATE: 20210402
